FAERS Safety Report 8811860 (Version 1)
Quarter: 2012Q4

REPORT INFORMATION
  Report Type: 
  Country: DE (occurrence: DE)
  Receive Date: 20120927
  Receipt Date: 20120927
  Transmission Date: 20130627
  Serious: Yes (Hospitalization, Congenital Anomaly)
  Sender: FDA-Public Use
  Company Number: DE-GLAXOSMITHKLINE-D0077135A

PATIENT
  Sex: Female

DRUGS (5)
  1. INFLUENZA VIRUS VACCINE NOS [Suspect]
     Indication: PROPHYLAXIS
     Route: 064
  2. LAMOTRIGINE [Suspect]
     Indication: EPILEPSY
     Dosage: 200MG Twice per day
     Route: 064
     Dates: start: 20110709, end: 20120321
  3. HUMALOG INSULIN [Concomitant]
     Indication: TYPE 1 DIABETES MELLITUS
     Route: 064
     Dates: start: 20110709, end: 20120321
  4. FOLSAN [Concomitant]
     Indication: PROPHYLAXIS OF NEURAL TUBE DEFECT
     Dosage: 5MG per day
     Route: 064
  5. NOVORAPID [Concomitant]
     Indication: TYPE 1 DIABETES MELLITUS
     Route: 064
     Dates: start: 20110709, end: 20120321

REACTIONS (5)
  - Gastroschisis [Recovered/Resolved with Sequelae]
  - Atrial septal defect [Unknown]
  - Haemangioma [Unknown]
  - Maternal exposure timing unspecified [Unknown]
  - Foetal exposure during pregnancy [Unknown]
